FAERS Safety Report 6533064-X (Version None)
Quarter: 2010Q1

REPORT INFORMATION
  Report Type: 
  Country: None (occurrence: None)
  Receive Date: 20100111
  Receipt Date: 20091230
  Transmission Date: 20100710
  Serious: Yes (Hospitalization)
  Sender: FDA-Public Use
  Company Number: DE-PFIZER INC-2010000263

PATIENT
  Age: 66 Year
  Sex: Male
  Weight: 64 kg

DRUGS (1)
  1. SUNITINIB MALATE [Suspect]
     Indication: HEPATIC NEOPLASM MALIGNANT
     Dosage: 37.5 MG, 1X/DAY
     Route: 048
     Dates: start: 20091001, end: 20091216

REACTIONS (3)
  - ASCITES [None]
  - OEDEMA PERIPHERAL [None]
  - TRANSIENT ISCHAEMIC ATTACK [None]
